FAERS Safety Report 7171185-1 (Version None)
Quarter: 2010Q4

REPORT INFORMATION
  Report Type: 
  Country: None (occurrence: None)
  Receive Date: 20101123
  Receipt Date: 20100823
  Transmission Date: 20110411
  Serious: No
  Sender: FDA-Public Use
  Company Number: 017659

PATIENT
  Sex: Female
  Weight: 92.1 kg

DRUGS (2)
  1. CIMZIA [Suspect]
     Indication: CROHN'S DISEASE
     Dosage: 400 MG 1X/28 DAYS SUBCUTANEOUS
     Route: 058
  2. PREDNISONE [Concomitant]

REACTIONS (2)
  - INTESTINAL OBSTRUCTION [None]
  - THYROID DISORDER [None]
